FAERS Safety Report 11370380 (Version 3)
Quarter: 2015Q4

REPORT INFORMATION
  Report Type: Spontaneous
  Country: RS (occurrence: RS)
  Receive Date: 20150812
  Receipt Date: 20151211
  Transmission Date: 20160304
  Serious: Yes (Other)
  Sender: FDA-Public Use
  Company Number: RS-PFIZER INC-2015263959

PATIENT
  Age: 9 Year
  Sex: Male

DRUGS (5)
  1. GENOTROPIN [Suspect]
     Active Substance: SOMATROPIN
     Dosage: 1.2 MG, DAILY
     Route: 058
     Dates: start: 20151204
  2. TIVORAL [Concomitant]
     Active Substance: LEVOTHYROXINE SODIUM
     Indication: HORMONE REPLACEMENT THERAPY
     Dosage: 50 UG,FOLLOWING 100 UG NEXT DAY,DAILY
     Route: 048
     Dates: start: 201201
  3. GENOTROPIN [Suspect]
     Active Substance: SOMATROPIN
     Indication: GROWTH HORMONE DEFICIENCY
     Dosage: 1.2 MG, DAILY
     Route: 058
     Dates: start: 20141217, end: 20150805
  4. HYDROCORTISONE. [Concomitant]
     Active Substance: HYDROCORTISONE
     Indication: HORMONE REPLACEMENT THERAPY
     Dosage: 15 MG (10MG+5MG), DAILY
     Dates: start: 201201
  5. MINIRIN [Concomitant]
     Active Substance: DESMOPRESSIN ACETATE
     Indication: HORMONE REPLACEMENT THERAPY
     Dosage: 1 DF (10 UG), 1X/DAY
     Route: 045
     Dates: start: 201201

REACTIONS (2)
  - Craniopharyngioma [Unknown]
  - Disease recurrence [Unknown]

NARRATIVE: CASE EVENT DATE: 20150528
